FAERS Safety Report 8530985-3 (Version None)
Quarter: 2012Q3

REPORT INFORMATION
  Report Type: 
  Country: None (occurrence: None)
  Receive Date: 20120723
  Receipt Date: 20120709
  Transmission Date: 20120928
  Serious: No
  Sender: FDA-Public Use
  Company Number: US-ENDO PHARMACEUTICALS INC.-ENDC20120039

PATIENT
  Sex: Female

DRUGS (2)
  1. OXYCODONE AND ACETAMINOPHEN [Suspect]
     Dosage: 20MG/650MG
     Route: 048
     Dates: start: 20120701
  2. OXYCODONE AND ACETAMINOPHEN [Suspect]
     Indication: PRODUCT USED FOR UNKNOWN INDICATION
     Dosage: 40MG/1300MG
     Route: 048
     Dates: start: 20120705, end: 20120701

REACTIONS (3)
  - MENTAL IMPAIRMENT [None]
  - PANIC ATTACK [None]
  - FEELING ABNORMAL [None]
